FAERS Safety Report 24444647 (Version 1)
Quarter: 2024Q4

REPORT INFORMATION
  Report Type: Spontaneous
  Country: US (occurrence: None)
  Receive Date: 20241015
  Receipt Date: 20241015
  Transmission Date: 20250115
  Serious: Yes (Hospitalization)
  Sender: Public
  Company Number: None

PATIENT
  Age: 80 Year
  Sex: Male
  Weight: 96 kg

DRUGS (2)
  1. TELMISARTAN [Suspect]
     Active Substance: TELMISARTAN
     Indication: Hypertension
     Dosage: FREQUENCY : DAILY;?
     Route: 048
     Dates: end: 20240720
  2. REMDESIVIR [Suspect]
     Active Substance: REMDESIVIR
     Dosage: FREQUENCY : DAILY;?
     Route: 042
     Dates: start: 20240716, end: 20240719

REACTIONS (1)
  - Lip swelling [None]

NARRATIVE: CASE EVENT DATE: 20240720
